FAERS Safety Report 15503078 (Version 1)
Quarter: 2018Q4

REPORT INFORMATION
  Report Type: Spontaneous
  Country: US (occurrence: US)
  Receive Date: 20181008
  Receipt Date: 20181008
  Transmission Date: 20190205
  Serious: Yes (Other)
  Sender: FDA-Public Use
  Company Number: None

PATIENT
  Age: 67 Year
  Sex: Female
  Weight: 94.2 kg

DRUGS (2)
  1. ERTAPENEM. [Concomitant]
     Active Substance: ERTAPENEM SODIUM
  2. CUBICIN [Suspect]
     Active Substance: DAPTOMYCIN
     Indication: POST PROCEDURAL INFECTION
     Route: 042
     Dates: start: 20180904, end: 20180911

REACTIONS (2)
  - Weight increased [None]
  - Peripheral swelling [None]

NARRATIVE: CASE EVENT DATE: 20180904
